FAERS Safety Report 8114742-8 (Version None)
Quarter: 2012Q1

REPORT INFORMATION
  Report Type: 
  Country: None (occurrence: None)
  Receive Date: 20120206
  Receipt Date: 20120203
  Transmission Date: 20120608
  Serious: Yes (Other)
  Sender: FDA-Public Use
  Company Number: US-PFIZER INC-2012030896

PATIENT
  Sex: Female
  Weight: 94.331 kg

DRUGS (22)
  1. CHANTIX [Suspect]
     Dosage: UNK
     Dates: end: 20120203
  2. VITAMIN D [Concomitant]
     Indication: VITAMIN D DEFICIENCY
     Dosage: 50000 IU, 2X/WEEK
  3. VITAMIN B COMPLEX CAP [Concomitant]
     Dosage: UNK
  4. TAGAMET [Concomitant]
     Dosage: UNK, AS NEEDED
  5. KETOCONAZOLE [Concomitant]
     Dosage: 2 %, 2-3 TIMES DAILY
  6. METHADONE [Concomitant]
     Dosage: 10 MG THREE TABLETS DAILY
  7. CHANTIX [Suspect]
     Indication: SMOKING CESSATION THERAPY
     Dosage: 0.5 MG, DAILY
     Dates: start: 20110101
  8. ACETAMINOPHEN [Concomitant]
     Dosage: UNK
  9. LISINOPRIL [Concomitant]
     Indication: HYPERTENSION
     Dosage: 10 MG, DAILY
  10. NEURONTIN [Concomitant]
     Dosage: 300 MG, 3X/DAY
  11. VICODIN [Concomitant]
     Dosage: UNK, AS NEEDED
  12. ADVAIR DISKUS 100/50 [Concomitant]
     Dosage: UNK, 2X/DAY
  13. SYNTHROID [Concomitant]
     Indication: THYROID DISORDER
     Dosage: 0.15 MG, DAILY
  14. LIPITOR [Suspect]
     Dosage: UNK
     Dates: end: 20110101
  15. NEURONTIN [Concomitant]
     Dosage: 300 MG, 4X/DAY
  16. TRAMADOL [Concomitant]
     Dosage: UNK
  17. EFFEXOR [Concomitant]
     Dosage: 300 MG, DAILY
  18. OXYBUTYNIN [Concomitant]
     Indication: INCONTINENCE
     Dosage: 5 MG BETWEEN 6-7 HOURS THREE TIMES A DAY
     Dates: start: 20110101
  19. METHADONE [Concomitant]
     Dosage: 10 MG TWO TABLETS DAILY
  20. DIAZEPAM [Concomitant]
     Dosage: 10 MG, 2X/DAY
  21. ZANTAC [Concomitant]
     Indication: FLATULENCE
     Dosage: 150 MG, 2X/DAY
  22. DIAZEPAM [Concomitant]
     Dosage: 10 MG, 3X/DAY

REACTIONS (6)
  - WEIGHT INCREASED [None]
  - SLEEP DISORDER [None]
  - COORDINATION ABNORMAL [None]
  - WEIGHT DECREASED [None]
  - URINARY TRACT INFECTION [None]
  - MENTAL IMPAIRMENT [None]
